FAERS Safety Report 17601992 (Version 1)
Quarter: 2020Q1

REPORT INFORMATION
  Report Type: Spontaneous
  Country: FR (occurrence: FR)
  Receive Date: 20200330
  Receipt Date: 20200330
  Transmission Date: 20200409
  Serious: Yes (Other)
  Sender: FDA-Public Use
  Company Number: FR-PURDUE-GBR-2020-0075883

PATIENT
  Age: 68 Year
  Sex: Female
  Weight: 72 kg

DRUGS (5)
  1. OXYCONTIN [Suspect]
     Active Substance: OXYCODONE HYDROCHLORIDE
     Indication: PAIN
     Dosage: 120 MG, DAILY (STRENGTH 60 MG)
     Route: 048
     Dates: start: 2017
  2. FLECAINE [Concomitant]
     Active Substance: FLECAINIDE
  3. ABSTRAL [Suspect]
     Active Substance: FENTANYL CITRATE
     Indication: PAIN
     Dosage: 200 MCG, DAILY
     Route: 060
     Dates: start: 2017
  4. RANITIDINE HYDROCHLORIDE. [Concomitant]
     Active Substance: RANITIDINE HYDROCHLORIDE
  5. OXYNORM [Suspect]
     Active Substance: OXYCODONE HYDROCHLORIDE
     Indication: PAIN
     Dosage: 10 MG, Q4H (STRENGTH 10 MG)
     Route: 048
     Dates: start: 2017

REACTIONS (3)
  - Balance disorder [Not Recovered/Not Resolved]
  - Intestinal obstruction [Recovered/Resolved]
  - Muscle spasms [Not Recovered/Not Resolved]

NARRATIVE: CASE EVENT DATE: 201904
